FAERS Safety Report 6142040-0 (Version None)
Quarter: 2009Q2

REPORT INFORMATION
  Report Type: 
  Country: None (occurrence: None)
  Receive Date: 20090402
  Receipt Date: 20090324
  Transmission Date: 20091009
  Serious: Yes (Disabling)
  Sender: FDA-Public Use
  Company Number: PHEH2009US00568

PATIENT
  Sex: Female

DRUGS (4)
  1. HYDROCHLOROTHIAZIDE [Suspect]
     Dosage: UNK, UNK
  2. DIOVAN [Suspect]
  3. POTASSIUM CHLORIDE [Suspect]
  4. ENALAPRIL [Suspect]

REACTIONS (4)
  - BLOOD PRESSURE INADEQUATELY CONTROLLED [None]
  - BLOOD PRESSURE INCREASED [None]
  - DISABILITY [None]
  - DRUG INEFFECTIVE [None]
